FAERS Safety Report 11288944 (Version 3)
Quarter: 2015Q3

REPORT INFORMATION
  Report Type: Spontaneous
  Country: US (occurrence: US)
  Receive Date: 20150721
  Receipt Date: 20150811
  Transmission Date: 20151125
  Serious: Yes (Other)
  Sender: FDA-Public Use
  Company Number: US-PERRIGO-15US005385

PATIENT
  Age: 64 Year
  Sex: Female
  Weight: 81.63 kg

DRUGS (1)
  1. COOL HEAT [Suspect]
     Active Substance: MENTHOL\METHYL SALICYLATE
     Indication: ARTHRALGIA
     Dosage: 1 GENEROUS APPLICATION TO KNEE, SINGLE
     Route: 061
     Dates: start: 20150507, end: 20150507

REACTIONS (6)
  - Application site scar [Recovering/Resolving]
  - Application site vesicles [Recovered/Resolved]
  - Emotional distress [Unknown]
  - Application site pain [Recovered/Resolved]
  - Application site erythema [Recovered/Resolved]
  - Burns second degree [Recovered/Resolved]

NARRATIVE: CASE EVENT DATE: 201505
